FAERS Safety Report 24533690 (Version 2)
Quarter: 2024Q4

REPORT INFORMATION
  Report Type: Spontaneous
  Country: CN (occurrence: CN)
  Receive Date: 20241022
  Receipt Date: 20241024
  Transmission Date: 20250114
  Serious: Yes (Life-Threatening, Hospitalization, Disabling)
  Sender: JOHNSON AND JOHNSON
  Company Number: CN-JNJFOC-20241048903

PATIENT
  Age: 15 Year
  Sex: Female
  Weight: 37 kg

DRUGS (1)
  1. REMICADE [Suspect]
     Active Substance: INFLIXIMAB
     Indication: Colitis ulcerative
     Route: 041
     Dates: start: 20241011, end: 20241011

REACTIONS (3)
  - Infusion related reaction [Recovering/Resolving]
  - Anaphylactoid reaction [Recovering/Resolving]
  - Blood pressure increased [Recovering/Resolving]

NARRATIVE: CASE EVENT DATE: 20241011
